FAERS Safety Report 20629657 (Version 1)
Quarter: 2022Q1

REPORT INFORMATION
  Report Type: Spontaneous
  Country: PH (occurrence: PH)
  Receive Date: 20220323
  Receipt Date: 20220323
  Transmission Date: 20220423
  Serious: Yes (Hospitalization)
  Sender: FDA-Public Use
  Company Number: PH-BoehringerIngelheim-2022-BI-159540

PATIENT

DRUGS (1)
  1. ALTEPLASE [Suspect]
     Active Substance: ALTEPLASE
     Indication: Product used for unknown indication
     Route: 065

REACTIONS (5)
  - Acute respiratory distress syndrome [Unknown]
  - COVID-19 [Unknown]
  - Pneumonia [Unknown]
  - Pulmonary embolism [Unknown]
  - Lung neoplasm malignant [Unknown]
